FAERS Safety Report 21064722 (Version 1)
Quarter: 2022Q3

REPORT INFORMATION
  Report Type: Spontaneous
  Country: US (occurrence: None)
  Receive Date: 20220710
  Receipt Date: 20220710
  Transmission Date: 20221026
  Serious: Yes (Hospitalization)
  Sender: FDA-Public Use
  Company Number: None

PATIENT
  Age: 73 Year
  Sex: Male
  Weight: 83.25 kg

DRUGS (1)
  1. METOPROLOL [Suspect]
     Active Substance: METOPROLOL

REACTIONS (6)
  - Limb discomfort [None]
  - Movement disorder [None]
  - Loss of consciousness [None]
  - Fall [None]
  - Hand fracture [None]
  - Contusion [None]

NARRATIVE: CASE EVENT DATE: 20220610
